FAERS Safety Report 21499694 (Version 1)
Quarter: 2022Q4

REPORT INFORMATION
  Report Type: Report from Study
  Country: US (occurrence: US)
  Receive Date: 20221024
  Receipt Date: 20221024
  Transmission Date: 20230113
  Serious: No
  Sender: FDA-Public Use
  Company Number: US-INCYTE CORPORATION-2022IN008833

PATIENT

DRUGS (1)
  1. JAKAFI [Suspect]
     Active Substance: RUXOLITINIB
     Indication: Myelofibrosis
     Dosage: 10 MILLIGRAM, BID
     Route: 065

REACTIONS (6)
  - Middle insomnia [Unknown]
  - Feeling abnormal [Unknown]
  - Gastrointestinal motility disorder [Unknown]
  - Abdominal pain lower [Unknown]
  - Pollakiuria [Unknown]
  - Dizziness [Unknown]
